FAERS Safety Report 7372114-8 (Version None)
Quarter: 2011Q1

REPORT INFORMATION
  Report Type: 
  Country: None (occurrence: None)
  Receive Date: 20110324
  Receipt Date: 20110317
  Transmission Date: 20110831
  Serious: Yes (Death)
  Sender: FDA-Public Use
  Company Number: US-ROCHE-767009

PATIENT
  Age: 62 Year
  Sex: Male

DRUGS (10)
  1. ALBUTEROL [Suspect]
     Dosage: ROUTE: INGESTION
     Route: 048
  2. DIAZEPAM [Suspect]
     Dosage: ONGOING STATUS UNKNOWN AT THE TIME OF DEATH, ROUTE: INGESTION
     Route: 048
  3. METHADONE [Suspect]
     Dosage: ROUTE: INGESTION
     Route: 048
  4. BUSPIRONE HCL [Suspect]
     Dosage: ROUTE: INGESTION
     Route: 048
  5. TRAMADOL [Suspect]
     Dosage: FORM: INGESTION
     Route: 048
  6. VENLAFAXINE [Suspect]
     Dosage: ROUTE: INGESTION
     Route: 048
  7. ZOLPIDEM [Suspect]
     Dosage: ROUTE: INGESTION
     Route: 048
  8. SIMVASTATIN [Suspect]
     Dosage: ROUTE: INGESTION
     Route: 048
  9. FLUOXETINE [Suspect]
     Dosage: ROUTE: INGESTION
     Route: 048
  10. QUETIAPINE [Suspect]
     Dosage: ROUTE: INGESTION
     Route: 048

REACTIONS (3)
  - TOXICITY TO VARIOUS AGENTS [None]
  - CARDIAC ARREST [None]
  - RESPIRATORY ARREST [None]
